FAERS Safety Report 10343572 (Version 1)
Quarter: 2014Q3

REPORT INFORMATION
  Report Type: Spontaneous
  Country: NL (occurrence: None)
  Receive Date: 20140723
  Receipt Date: 20140723
  Transmission Date: 20150326
  Serious: Yes (Hospitalization)
  Sender: FDA-Public Use
  Company Number: IPC201407-000359

PATIENT
  Age: 46 Year
  Sex: Male

DRUGS (9)
  1. ENALAPRIL [Suspect]
     Active Substance: ENALAPRIL
  2. OMEPRAZOLE. [Suspect]
     Active Substance: OMEPRAZOLE
  3. SIMVASTATIN. [Suspect]
     Active Substance: SIMVASTATIN
  4. RIBAVIRIN. [Suspect]
     Active Substance: RIBAVIRIN
     Indication: CHRONIC HEPATITIS C
  5. LACTULOSE. [Suspect]
     Active Substance: LACTULOSE
  6. METFORMIN HYDROCHLORIDE. [Suspect]
     Active Substance: METFORMIN HYDROCHLORIDE
  7. PEGYLATED INTERFERON ALPHA NOS [Suspect]
     Active Substance: PEGINTERFERON ALFA-2A OR PEGINTERFERON ALFA-2B
     Indication: CHRONIC HEPATITIS C
  8. HYDROCHLOROTHIAZIDE. [Suspect]
     Active Substance: HYDROCHLOROTHIAZIDE
  9. TELAPREVIR [Suspect]
     Active Substance: TELAPREVIR
     Indication: CHRONIC HEPATITIS C
     Dosage: 2250 MG, 750 MG THRICE DAILY

REACTIONS (16)
  - Decreased appetite [None]
  - Blood albumin decreased [None]
  - Bacterial infection [None]
  - Back pain [None]
  - Dysuria [None]
  - Blood glucose increased [None]
  - Musculoskeletal pain [None]
  - Drug interaction [None]
  - Nausea [None]
  - Rhabdomyolysis [None]
  - Haemoglobin decreased [None]
  - Abdominal pain [None]
  - Oedema [None]
  - Vomiting [None]
  - Dyspnoea exertional [None]
  - Pyrexia [None]
